FAERS Safety Report 9608106 (Version 2)
Quarter: 2014Q1

REPORT INFORMATION
  Report Type: Spontaneous
  Country: US (occurrence: US)
  Receive Date: 20131009
  Receipt Date: 20140116
  Transmission Date: 20141002
  Serious: No
  Sender: FDA-Public Use
  Company Number: US-PFIZER INC-2013287524

PATIENT
  Sex: 0

DRUGS (5)
  1. CELEBREX [Suspect]
     Dosage: UNK
  2. PREMARIN [Suspect]
     Dosage: UNK
  3. LYRICA [Suspect]
     Dosage: UNK
  4. ZOLOFT [Suspect]
     Dosage: UNK
  5. DETROL LA [Suspect]
     Dosage: UNK

REACTIONS (1)
  - Malaise [Unknown]
